FAERS Safety Report 7876825-7 (Version None)
Quarter: 2011Q4

REPORT INFORMATION
  Report Type: 
  Country: None (occurrence: None)
  Receive Date: 20111031
  Receipt Date: 20111017
  Transmission Date: 20120403
  Serious: Yes (Hospitalization, Disabling)
  Sender: FDA-Public Use
  Company Number: US-ELI_LILLY_AND_COMPANY-US201011005467

PATIENT
  Sex: Female

DRUGS (9)
  1. HYDROCHLOROTHIAZIDE [Concomitant]
     Dosage: 12.5 MG, UNK
  2. VALIUM [Concomitant]
  3. MELOXICAM [Concomitant]
  4. CALTRATE + VITAMIN D [Concomitant]
  5. VICODIN [Concomitant]
  6. FORTEO [Suspect]
     Dosage: 20 UG, QD
     Route: 058
  7. ADVAIR DISKUS 100/50 [Concomitant]
  8. FORTEO [Suspect]
     Indication: OSTEOPOROSIS
     Dosage: 20 UG, DAILY (1/D)
     Route: 058
     Dates: start: 20101101
  9. ANALGESICS [Concomitant]
     Indication: PAIN

REACTIONS (7)
  - CHRONIC OBSTRUCTIVE PULMONARY DISEASE [None]
  - OEDEMA PERIPHERAL [None]
  - DYSPNOEA [None]
  - SKIN DISORDER [None]
  - NASOPHARYNGITIS [None]
  - PNEUMONIA [None]
  - GAIT DISTURBANCE [None]
